FAERS Safety Report 6720378-3 (Version None)
Quarter: 2010Q2

REPORT INFORMATION
  Report Type: 
  Country: None (occurrence: None)
  Receive Date: 20100507
  Receipt Date: 20100422
  Transmission Date: 20101027
  Serious: Yes (Other)
  Sender: FDA-Public Use
  Company Number: AUR-APL-2010-01223

PATIENT
  Age: 65 Year
  Sex: Female

DRUGS (2)
  1. SIMVASTATIN [Suspect]
     Dates: start: 20030101
  2. ZARATOR (PFIZER) [Suspect]

REACTIONS (2)
  - CYSTITIS [None]
  - DRUG INEFFECTIVE [None]
